FAERS Safety Report 9193161 (Version 4)
Quarter: 2013Q2

REPORT INFORMATION
  Report Type: Spontaneous
  Country: US (occurrence: US)
  Receive Date: 20130327
  Receipt Date: 20130510
  Transmission Date: 20140414
  Serious: No
  Sender: FDA-Public Use
  Company Number: US-PFIZER INC-2013096437

PATIENT
  Age: 33 Year
  Sex: Female
  Weight: 63.49 kg

DRUGS (16)
  1. GEODON [Suspect]
     Dosage: 20 MG, DAILY
     Route: 048
     Dates: start: 2004
  2. GEODON [Suspect]
     Dosage: 40 MG, 2X/DAY
     Route: 048
     Dates: start: 201210
  3. GEODON [Suspect]
     Dosage: 40 MG, UNK
     Route: 048
  4. GEODON [Suspect]
     Dosage: 20 MG, UNK
     Route: 048
  5. DILANTIN [Concomitant]
     Indication: CONVULSION
     Dosage: 100 MG, 2X/DAY
     Dates: start: 2009
  6. KEPPRA [Concomitant]
     Indication: CONVULSION
     Dosage: 500 MG, 2X/DAY
     Route: 048
     Dates: start: 2010
  7. FERROUS SULFATE [Concomitant]
     Indication: THYROID DISORDER
     Dosage: 1 DF, 1X/DAY
     Route: 048
     Dates: start: 2010
  8. FERROUS SULFATE [Concomitant]
     Indication: IRON DEFICIENCY
  9. VITAMIN D [Concomitant]
     Indication: THYROID DISORDER
     Dosage: 1 DF, 2X/DAY
     Route: 048
     Dates: start: 2010
  10. VITAMIN D [Concomitant]
     Indication: UTERINE LEIOMYOMA
  11. DOCQLACE [Concomitant]
     Indication: ASTHMA
     Dosage: 100 MG, 3X/DAY
  12. IBUPROFEN [Concomitant]
     Indication: PAIN
     Dosage: UNK, 2X/DAY
  13. COLACE [Concomitant]
     Indication: CONSTIPATION
     Dosage: UNK, 2X/DAY
     Dates: start: 2010
  14. QVAR [Concomitant]
     Indication: ASTHMA
     Dosage: 80 MG, 2X/DAY
     Dates: start: 2006
  15. ACETAMINOPHEN [Concomitant]
     Indication: PAIN
     Dosage: 500 MG, AS NEEDED
     Dates: start: 2011
  16. PROVENTIL HFA [Concomitant]
     Indication: ASTHMA
     Dosage: UNK, AS NEEDED

REACTIONS (5)
  - Pain [Not Recovered/Not Resolved]
  - Joint swelling [Not Recovered/Not Resolved]
  - Movement disorder [Not Recovered/Not Resolved]
  - Drug intolerance [Unknown]
  - Disturbance in attention [Unknown]
